FAERS Safety Report 14531927 (Version 3)
Quarter: 2018Q1

REPORT INFORMATION
  Report Type: Report from Study
  Country: US (occurrence: US)
  Receive Date: 20180214
  Receipt Date: 20180315
  Transmission Date: 20180509
  Serious: Yes (Life-Threatening, Hospitalization, Other)
  Sender: FDA-Public Use
  Company Number: US-GILEAD-2018-0316509

PATIENT
  Age: 69 Year
  Sex: Female
  Weight: 75.9 kg

DRUGS (3)
  1. IDELALISIB [Suspect]
     Active Substance: IDELALISIB
     Dosage: 100 MG, UNK
     Route: 048
     Dates: start: 20170620, end: 20180115
  2. IDELALISIB [Suspect]
     Active Substance: IDELALISIB
     Indication: CHRONIC LYMPHOCYTIC LEUKAEMIA
     Dosage: 100 MG, BID
     Route: 048
     Dates: start: 20170617, end: 20180126
  3. IDELALISIB [Suspect]
     Active Substance: IDELALISIB
     Dosage: 100 MG, UNK
     Route: 048
     Dates: start: 20170617, end: 20180209

REACTIONS (6)
  - Renal failure [Unknown]
  - Colitis [Recovered/Resolved]
  - Electrolyte imbalance [Unknown]
  - Vomiting [Unknown]
  - Dehydration [Unknown]
  - Diarrhoea [Not Recovered/Not Resolved]

NARRATIVE: CASE EVENT DATE: 20180102
